FAERS Safety Report 8630945 (Version 2)
Quarter: 2012Q4

REPORT INFORMATION
  Report Type: 
  Country: NL (occurrence: NL)
  Receive Date: 20120622
  Receipt Date: 20120914
  Transmission Date: 20130627
  Serious: Yes (Life-Threatening, Hospitalization, Other)
  Sender: FDA-Public Use
  Company Number: PHHO2012NL006740

PATIENT
  Age: 68 Year
  Sex: Male
  Weight: 74 kg

DRUGS (4)
  1. ALISKIREN [Suspect]
     Indication: CARDIAC FAILURE
     Dosage: 150 mg, QD
     Route: 048
     Dates: start: 20120502, end: 20120508
  2. COMPARATOR ENALAPRIL [Suspect]
     Indication: CARDIAC FAILURE
     Dosage: 20 mg, BID
     Route: 048
     Dates: start: 20120418, end: 20120508
  3. NO TREATMENT RECEIVED [Suspect]
     Indication: CARDIAC FAILURE
     Dosage: No treatment
  4. SOTALOL [Concomitant]
     Indication: CARDIOMYOPATHY
     Dosage: 160 mg, BID
     Route: 048
     Dates: start: 20030207, end: 20120428

REACTIONS (3)
  - Cardiac failure [Not Recovered/Not Resolved]
  - Renal failure [Recovered/Resolved]
  - Ventricular tachycardia [Recovered/Resolved]
